FAERS Safety Report 4707990-8 (Version None)
Quarter: 2005Q2

REPORT INFORMATION
  Report Type: 
  Country: None (occurrence: None)
  Receive Date: 20050629
  Receipt Date: 20050503
  Transmission Date: 20051028
  Serious: No
  Sender: FDA-Public Use
  Company Number: 05P-163-0299505-00

PATIENT
  Age: 55 Year
  Sex: Female
  Weight: 105 kg

DRUGS (5)
  1. HUMIRA [Suspect]
     Indication: PSORIATIC ARTHROPATHY
     Dosage: 40 MG, 1 IN 2 WK, SUBCUTANEOUS
     Route: 058
     Dates: start: 20050301, end: 20050301
  2. HUMIRA [Suspect]
     Indication: PSORIATIC ARTHROPATHY
     Dosage: 40 MG, 1 IN 2 WK, SUBCUTANEOUS
     Route: 058
     Dates: start: 20050401
  3. IRBESARTAN [Concomitant]
  4. METFORMIN HCL [Concomitant]
  5. GLIMEPIRIDE [Concomitant]

REACTIONS (1)
  - INJECTION SITE IRRITATION [None]
